FAERS Safety Report 8702397 (Version 3)
Quarter: 2012Q4

REPORT INFORMATION
  Report Type: 
  Country: JP (occurrence: JP)
  Receive Date: 20120803
  Receipt Date: 20120903
  Transmission Date: 20130627
  Serious: Yes (Hospitalization, Other)
  Sender: FDA-Public Use
  Company Number: JP-ELI_LILLY_AND_COMPANY-JP201207007846

PATIENT
  Sex: Female

DRUGS (1)
  1. FORTEO [Suspect]
     Dosage: UNK
     Route: 058
     Dates: start: 201108, end: 201204

REACTIONS (5)
  - Loss of consciousness [Recovered/Resolved]
  - Fracture [Unknown]
  - Fall [Recovered/Resolved]
  - Hospitalisation [Not Recovered/Not Resolved]
  - Dizziness [Not Recovered/Not Resolved]
